FAERS Safety Report 17739847 (Version 1)
Quarter: 2020Q2

REPORT INFORMATION
  Report Type: Spontaneous
  Country: US (occurrence: US)
  Receive Date: 20200504
  Receipt Date: 20200504
  Transmission Date: 20200714
  Serious: No
  Sender: FDA-Public Use
  Company Number: US-ASTRAZENECA-2020SE53462

PATIENT
  Sex: Female

DRUGS (2)
  1. NITROGLYCERIN. [Concomitant]
     Active Substance: NITROGLYCERIN
  2. SYMBICORT [Suspect]
     Active Substance: BUDESONIDE\FORMOTEROL FUMARATE DIHYDRATE
     Indication: ASTHMA
     Dosage: UNKNOWN UNKNOWN
     Route: 055
     Dates: start: 202004

REACTIONS (12)
  - Vomiting [Unknown]
  - Discomfort [Unknown]
  - Dyspnoea [Unknown]
  - Oxygen saturation decreased [Unknown]
  - Asthenia [Unknown]
  - Flatulence [Unknown]
  - Abdominal pain [Unknown]
  - Vertigo [Unknown]
  - Adverse drug reaction [Unknown]
  - Malaise [Unknown]
  - Chest pain [Unknown]
  - Dizziness [Unknown]
